FAERS Safety Report 19194502 (Version 14)
Quarter: 2022Q4

REPORT INFORMATION
  Report Type: Report from Study
  Country: FR (occurrence: FR)
  Receive Date: 20210429
  Receipt Date: 20221216
  Transmission Date: 20230113
  Serious: Yes (Hospitalization, Other)
  Sender: FDA-Public Use
  Company Number: NVSC2021FR006329

PATIENT
  Age: 67 Year
  Sex: Female
  Weight: 43 kg

DRUGS (11)
  1. TRAMETINIB [Suspect]
     Active Substance: TRAMETINIB
     Indication: Metastatic malignant melanoma
     Dosage: 2 MG
     Route: 048
     Dates: start: 20200916, end: 20201119
  2. TRAMETINIB [Suspect]
     Active Substance: TRAMETINIB
     Dosage: 1 MG
     Route: 048
     Dates: start: 20201205, end: 20201206
  3. TRAMETINIB [Suspect]
     Active Substance: TRAMETINIB
     Dosage: 1 MG
     Route: 048
     Dates: start: 20201211, end: 202104
  4. DABRAFENIB [Suspect]
     Active Substance: DABRAFENIB
     Indication: Metastatic malignant melanoma
     Dosage: 150 MG
     Route: 048
     Dates: start: 20200916, end: 20201119
  5. DABRAFENIB [Suspect]
     Active Substance: DABRAFENIB
     Dosage: 75 MG
     Route: 048
     Dates: start: 20201202, end: 20201203
  6. DABRAFENIB [Suspect]
     Active Substance: DABRAFENIB
     Dosage: 150 MG
     Route: 048
     Dates: start: 20201203, end: 20201205
  7. DABRAFENIB [Suspect]
     Active Substance: DABRAFENIB
     Dosage: 75 MG
     Route: 048
     Dates: start: 20201205, end: 20201206
  8. DABRAFENIB [Suspect]
     Active Substance: DABRAFENIB
     Dosage: 75 MG
     Route: 048
     Dates: start: 20201207, end: 20201208
  9. DABRAFENIB [Suspect]
     Active Substance: DABRAFENIB
     Dosage: 150 MG
     Route: 048
     Dates: start: 20201208, end: 20210402
  10. VENOFER [Concomitant]
     Active Substance: IRON SUCROSE
     Indication: Anaemia
     Dosage: UNK
     Route: 042
  11. IRON [Concomitant]
     Active Substance: IRON
     Indication: Product used for unknown indication
     Dosage: UNK
     Route: 065

REACTIONS (25)
  - Small intestinal obstruction [Recovering/Resolving]
  - Pulmonary arterial hypertension [Recovering/Resolving]
  - Condition aggravated [Recovering/Resolving]
  - Diarrhoea [Recovered/Resolved]
  - Scleroderma [Not Recovered/Not Resolved]
  - COVID-19 [Recovered/Resolved]
  - Pyrexia [Unknown]
  - Vomiting [Unknown]
  - Nausea [Unknown]
  - Oesophagitis [Unknown]
  - Pleural effusion [Recovering/Resolving]
  - Necrotising oesophagitis [Recovering/Resolving]
  - Cardiac failure [Recovering/Resolving]
  - Spinal compression fracture [Not Recovered/Not Resolved]
  - Hypothyroidism [Recovering/Resolving]
  - Gastrooesophageal reflux disease [Unknown]
  - Decreased appetite [Unknown]
  - Abdominal distension [Unknown]
  - Anal incontinence [Recovering/Resolving]
  - Rash [Not Recovered/Not Resolved]
  - Hiatus hernia [Not Recovered/Not Resolved]
  - Venous thrombosis limb [Recovering/Resolving]
  - Fungal infection [Recovered/Resolved]
  - Dyspnoea exertional [Not Recovered/Not Resolved]
  - Abdominal pain [Recovering/Resolving]

NARRATIVE: CASE EVENT DATE: 20201006
